FAERS Safety Report 7773087-6 (Version None)
Quarter: 2011Q3

REPORT INFORMATION
  Report Type: 
  Country: None (occurrence: None)
  Receive Date: 20110922
  Receipt Date: 20100824
  Transmission Date: 20111222
  Serious: No
  Sender: FDA-Public Use
  Company Number: US-ASTRAZENECA-2008UW04643

PATIENT
  Age: 42 Year
  Sex: Female
  Weight: 124.7 kg

DRUGS (21)
  1. SENNA [Concomitant]
     Dates: start: 20030411
  2. ABILIFY [Concomitant]
     Route: 048
     Dates: start: 20030411
  3. SEROQUEL [Suspect]
     Dosage: 25-100 MG
     Route: 048
     Dates: start: 20030203
  4. INDERAL [Concomitant]
     Dosage: 20-40 MG
     Route: 048
     Dates: start: 20030411
  5. BEXTRA [Concomitant]
     Dates: start: 20030908
  6. PAXIL [Concomitant]
     Dates: start: 19990720
  7. ZYPREXA [Concomitant]
     Dosage: 5-20 MG
     Route: 048
     Dates: start: 20020910
  8. LOTRISONE [Concomitant]
     Dates: start: 20030212
  9. NYSTAT/TRAIM [Concomitant]
     Dates: start: 20030311
  10. CLARINEX [Concomitant]
     Dates: start: 20031202
  11. COGENTIN [Concomitant]
     Route: 048
     Dates: start: 19990228
  12. SENOKOT [Concomitant]
     Indication: CONSTIPATION
     Dosage: 1 OR 2 PER 12 HOURS, AS REQUIRED
     Dates: start: 20030410
  13. MAGNESIUM HYDROXIDE TAB [Concomitant]
     Indication: DYSPEPSIA
     Route: 048
     Dates: start: 20030410
  14. SEROQUEL [Suspect]
     Indication: SCHIZOPHRENIA
     Dosage: 25-100 MG
     Route: 048
     Dates: start: 20030203, end: 20030503
  15. GEODON [Concomitant]
     Indication: HALLUCINATION
     Dosage: 20 MG VIAL
     Dates: start: 20030406
  16. MOTRIN [Concomitant]
     Indication: PAIN
     Route: 048
     Dates: start: 20030410
  17. LORAZEPAM [Concomitant]
     Dates: start: 20030406
  18. TRIAMTERENE AND HYDROCHLOROTHIAZIDE [Concomitant]
     Dosage: 37.5/25
     Dates: start: 20030411
  19. HALDOL [Concomitant]
  20. PROMETHAZINE [Concomitant]
     Indication: NAUSEA
     Route: 048
     Dates: start: 20030410
  21. STELAZINE [Concomitant]

REACTIONS (3)
  - TYPE 2 DIABETES MELLITUS [None]
  - ADVERSE DRUG REACTION [None]
  - DIABETIC COMPLICATION [None]
